FAERS Safety Report 4636498-3 (Version None)
Quarter: 2005Q2

REPORT INFORMATION
  Report Type: 
  Country: None (occurrence: None)
  Receive Date: 20050415
  Receipt Date: 20050406
  Transmission Date: 20051028
  Serious: Yes (Other)
  Sender: FDA-Public Use
  Company Number: AU-BRISTOL-MYERS SQUIBB COMPANY-12922654

PATIENT
  Sex: Male

DRUGS (3)
  1. ZERIT [Suspect]
     Dosage: STARTED APPROXIMATELY 2 YEARS.
  2. REYATAZ [Suspect]
     Dates: start: 20040301
  3. LAMIVUDINE [Concomitant]

REACTIONS (3)
  - ARTHRALGIA [None]
  - PAIN IN EXTREMITY [None]
  - PARAESTHESIA [None]
